FAERS Safety Report 21752361 (Version 1)
Quarter: 2022Q4

REPORT INFORMATION
  Report Type: Spontaneous
  Country: CN (occurrence: CN)
  Receive Date: 20221220
  Receipt Date: 20221220
  Transmission Date: 20230113
  Serious: Yes (Other)
  Sender: FDA-Public Use
  Company Number: None

PATIENT
  Age: 73 Year
  Sex: Male
  Weight: 78 kg

DRUGS (5)
  1. IFOSFAMIDE [Suspect]
     Active Substance: IFOSFAMIDE
     Indication: Gastric cancer
     Dosage: 2 G, Q21D, D1-D5, (DOSAGE FORM: POWDER INJECTION)
     Route: 041
     Dates: start: 20221126, end: 20221130
  2. MESNA [Suspect]
     Active Substance: MESNA
     Indication: Product used for unknown indication
     Dosage: 400 MG, 0, 4 AND 8H, DILUTED WITH 500 ML OF GLUCOSE
     Route: 041
  3. DEXTROSE MONOHYDRATE [Suspect]
     Active Substance: DEXTROSE MONOHYDRATE
     Indication: Medication dilution
     Dosage: 500 ML , 0, 4 AND 8H, USED TO DILUTE 400 MG MESNA
     Route: 041
  4. EPIRUBICIN HYDROCHLORIDE [Suspect]
     Active Substance: EPIRUBICIN HYDROCHLORIDE
     Indication: Gastric cancer
     Dosage: 60 MG, D1
     Route: 065
     Dates: start: 20221126, end: 20221126
  5. EPIRUBICIN HYDROCHLORIDE [Suspect]
     Active Substance: EPIRUBICIN HYDROCHLORIDE
     Dosage: 50 MG, D2
     Route: 065
     Dates: start: 20221127, end: 20221127

REACTIONS (1)
  - Cystitis haemorrhagic [Recovered/Resolved]

NARRATIVE: CASE EVENT DATE: 20221128
